FAERS Safety Report 6395427-5 (Version None)
Quarter: 2009Q4

REPORT INFORMATION
  Report Type: 
  Country: None (occurrence: None)
  Receive Date: 20091009
  Receipt Date: 20090930
  Transmission Date: 20100525
  Serious: Yes (Hospitalization)
  Sender: FDA-Public Use
  Company Number: US-PFIZER INC-2009165587

PATIENT
  Age: 64 Year
  Sex: Male
  Weight: 62.5 kg

DRUGS (13)
  1. IRINOTECAN HCL [Suspect]
     Dosage: 100 MG/M2, ON DAYS 1 AND 8 EVERY 21 DAYS
     Route: 042
     Dates: start: 20080709, end: 20080806
  2. INVESTIGATIONAL DRUG [Suspect]
     Indication: OESOPHAGEAL CARCINOMA
     Dosage: 10 MG CYCLIC
     Route: 048
     Dates: start: 20080709, end: 20080812
  3. FENTANYL CITRATE [Concomitant]
  4. ACETYLSALICYLIC ACID [Concomitant]
  5. LORAZEPAM [Concomitant]
  6. PROCHLORPERAZINE EDISYLATE [Concomitant]
  7. DIGOXIN [Concomitant]
  8. FENTANYL [Concomitant]
  9. LOPERAMIDE HYDROCHLORIDE [Concomitant]
  10. ATORVASTATIN CALCIUM [Concomitant]
  11. PANADEINE CO [Concomitant]
  12. VICODIN [Concomitant]
  13. ALPRAZOLAM [Concomitant]

REACTIONS (4)
  - DYSPHAGIA [None]
  - HAEMOGLOBIN DECREASED [None]
  - NEUTROPHIL COUNT DECREASED [None]
  - WHITE BLOOD CELL COUNT DECREASED [None]
